FAERS Safety Report 4745593-X (Version None)
Quarter: 2005Q3

REPORT INFORMATION
  Report Type: 
  Country: None (occurrence: None)
  Receive Date: 20050815
  Receipt Date: 20050803
  Transmission Date: 20060218
  Serious: Yes (Other)
  Sender: FDA-Public Use
  Company Number: CHPA2005US02020

PATIENT
  Age: 51 Year
  Sex: Female
  Weight: 72.6 kg

DRUGS (1)
  1. CONTROL STEL 1 21MG (NCH) (NICOTINE) TRANS-THERAPEUTIC-SYSTEM [Suspect]
     Indication: SMOKING CESSATION THERAPY
     Dosage: 21 MG, QD, TRANSDERMAL
     Route: 062
     Dates: start: 20050705

REACTIONS (4)
  - CRYING [None]
  - DEPRESSION [None]
  - SMOKER [None]
  - TREATMENT NONCOMPLIANCE [None]
